FAERS Safety Report 9483246 (Version 1)
Quarter: 2013Q3

REPORT INFORMATION
  Report Type: Other
  Country: GB (occurrence: GB)
  Receive Date: 20130828
  Receipt Date: 20130828
  Transmission Date: 20140515
  Serious: Yes (Hospitalization, Other)
  Sender: FDA-Public Use
  Company Number: GB-PERRIGO-13GB008780

PATIENT
  Age: 29 Year
  Sex: Female
  Weight: 55 kg

DRUGS (2)
  1. IBUPROFEN 16028/0027 200 MG [Suspect]
     Indication: TONSILLITIS
     Dosage: UNK
     Route: 048
  2. ASPIRIN [Suspect]
     Indication: HEADACHE
     Dosage: UNK
     Route: 048

REACTIONS (6)
  - Dyspnoea [Recovered/Resolved with Sequelae]
  - Eye swelling [Recovered/Resolved with Sequelae]
  - Skin mass [Recovered/Resolved with Sequelae]
  - Swelling face [Recovered/Resolved with Sequelae]
  - Paraesthesia oral [Unknown]
  - Wheezing [Recovered/Resolved with Sequelae]
